FAERS Safety Report 9677192 (Version 1)
Quarter: 2013Q4

REPORT INFORMATION
  Report Type: Report from Study
  Country: SI (occurrence: SI)
  Receive Date: 20131108
  Receipt Date: 20131108
  Transmission Date: 20140711
  Serious: Yes (Other)
  Sender: FDA-Public Use
  Company Number: SI-ROCHE-1300382

PATIENT
  Sex: 0

DRUGS (2)
  1. MYCOPHENOLATE MOFETIL [Suspect]
     Indication: STEM CELL TRANSPLANT
     Route: 065
  2. VALPROIC ACID [Interacting]
     Indication: PRODUCT USED FOR UNKNOWN INDICATION
     Route: 065

REACTIONS (2)
  - Cytomegalovirus infection [Unknown]
  - Drug interaction [Unknown]
